FAERS Safety Report 10218603 (Version 1)
Quarter: 2014Q2

REPORT INFORMATION
  Report Type: Spontaneous
  Country: US (occurrence: US)
  Receive Date: 20140605
  Receipt Date: 20140605
  Transmission Date: 20141212
  Serious: No
  Sender: FDA-Public Use
  Company Number: US-PFIZER INC-2014151855

PATIENT
  Age: 68 Year
  Sex: Male
  Weight: 73.47 kg

DRUGS (6)
  1. SUTENT [Suspect]
     Dosage: 37.5 MG, UNK
  2. AMLODIPINE [Concomitant]
     Dosage: UNK
  3. LEXAPRO [Concomitant]
     Dosage: UNK
  4. ALLOPURINOL [Concomitant]
     Dosage: UNK
  5. DIVALPROEX [Concomitant]
     Dosage: UNK
  6. SIMVASTATIN [Concomitant]
     Dosage: UNK

REACTIONS (3)
  - Diarrhoea [Unknown]
  - Disease progression [Unknown]
  - Renal cell carcinoma [Unknown]
